FAERS Safety Report 16662020 (Version 1)
Quarter: 2019Q3

REPORT INFORMATION
  Report Type: Spontaneous
  Country: US (occurrence: US)
  Receive Date: 20190802
  Receipt Date: 20190802
  Transmission Date: 20191004
  Serious: No
  Sender: FDA-Public Use
  Company Number: None

PATIENT
  Age: 27 Month
  Sex: Male

DRUGS (1)
  1. TRIAMCINOLONE [Suspect]
     Active Substance: TRIAMCINOLONE
     Indication: ECZEMA

REACTIONS (5)
  - Generalised erythema [None]
  - Swelling face [None]
  - Pruritus generalised [None]
  - Steroid withdrawal syndrome [None]
  - Malaise [None]

NARRATIVE: CASE EVENT DATE: 20190501
